FAERS Safety Report 8423008-8 (Version None)
Quarter: 2012Q2

REPORT INFORMATION
  Report Type: 
  Country: None (occurrence: None)
  Receive Date: 20120608
  Receipt Date: 20120601
  Transmission Date: 20120825
  Serious: Yes (Hospitalization)
  Sender: FDA-Public Use
  Company Number: IT-ASTRAZENECA-2012SE36088

PATIENT
  Age: 80 Year
  Sex: Female

DRUGS (8)
  1. METFORMIN HCL [Concomitant]
     Indication: DIABETES MELLITUS
     Route: 048
  2. CRESTOR [Suspect]
     Indication: DYSLIPIDAEMIA
     Route: 048
     Dates: start: 20070101
  3. CARDIAZIDE [Concomitant]
     Indication: HYPERTENSION
     Route: 048
  4. ESOPRAL [Concomitant]
     Indication: GASTRITIS PROPHYLAXIS
     Route: 048
  5. ASPIRIN [Concomitant]
     Dosage: TABLETS
     Route: 048
  6. CARDURA [Concomitant]
     Indication: HYPERTENSION
     Route: 048
  7. LEVOTHYROXINE SODIUM [Concomitant]
  8. LIBRADIN [Concomitant]
     Indication: HYPERTENSION
     Route: 048

REACTIONS (1)
  - HAEMORRHAGIC STROKE [None]
